FAERS Safety Report 6661290-8 (Version None)
Quarter: 2010Q1

REPORT INFORMATION
  Report Type: 
  Country: None (occurrence: None)
  Receive Date: 20100331
  Receipt Date: 20090911
  Transmission Date: 20100710
  Serious: Yes (Hospitalization)
  Sender: FDA-Public Use
  Company Number: JP-BAYER-200813206BYL

PATIENT
  Age: 49 Year
  Sex: Female
  Weight: 66 kg

DRUGS (8)
  1. NEXAVAR [Suspect]
     Indication: RENAL CELL CARCINOMA STAGE IV
     Dosage: TOTAL DAILY DOSE: 800 MG  UNIT DOSE: 200 MG
     Route: 048
     Dates: start: 20081201, end: 20081212
  2. NEXAVAR [Suspect]
     Dosage: UNIT DOSE: 200 MG
     Route: 048
     Dates: start: 20081222, end: 20090424
  3. NEXAVAR [Suspect]
     Route: 048
     Dates: start: 20090508, end: 20090825
  4. OMEPRAL [Concomitant]
     Route: 048
     Dates: start: 20081201
  5. LAXOBERON [Concomitant]
     Route: 048
     Dates: start: 20081210, end: 20081217
  6. FLUITRAN [Concomitant]
     Route: 048
     Dates: start: 20090102
  7. GASMOTIN [Concomitant]
     Route: 048
     Dates: start: 20090226, end: 20090312
  8. ALOSENN [Concomitant]
     Route: 048
     Dates: start: 20090226, end: 20090312

REACTIONS (4)
  - DYSPHONIA [None]
  - HYPERTENSION [None]
  - OSTEOARTHRITIS [None]
  - PALMAR-PLANTAR ERYTHRODYSAESTHESIA SYNDROME [None]
